FAERS Safety Report 6988217-3 (Version None)
Quarter: 2010Q3

REPORT INFORMATION
  Report Type: 
  Country: None (occurrence: None)
  Receive Date: 20100916
  Receipt Date: 20100908
  Transmission Date: 20110219
  Serious: Yes (Hospitalization)
  Sender: FDA-Public Use
  Company Number: GXKR2010CH10245

PATIENT
  Age: 74 Year
  Sex: Female
  Weight: 56 kg

DRUGS (3)
  1. METO ZEROK (NGX) [Suspect]
     Indication: ESSENTIAL HYPERTENSION
     Dosage: 25 MG/DAY
     Route: 048
     Dates: start: 20070101, end: 20100806
  2. LISINOPRIL (NGX) [Suspect]
     Indication: ESSENTIAL HYPERTENSION
     Dosage: 20 MG/DAY
     Route: 048
     Dates: start: 20060101, end: 20100806
  3. CELEBREX [Suspect]
     Indication: MUSCULOSKELETAL PAIN
     Dosage: 200 MG, QW3
     Route: 048
     Dates: start: 20050101, end: 20100806

REACTIONS (2)
  - RENAL FAILURE ACUTE [None]
  - TUBULOINTERSTITIAL NEPHRITIS [None]
